FAERS Safety Report 7643429-0 (Version None)
Quarter: 2011Q3

REPORT INFORMATION
  Report Type: 
  Country: None (occurrence: None)
  Receive Date: 20110729
  Receipt Date: 20110719
  Transmission Date: 20111222
  Serious: Yes (Hospitalization, Disabling)
  Sender: FDA-Public Use
  Company Number: CA-JNJFOC-20110708608

PATIENT
  Sex: Male
  Weight: 75 kg

DRUGS (7)
  1. PENTASA [Concomitant]
  2. MESALAMINE [Concomitant]
  3. TYLENOL W/ CODEINE NO. 3 [Concomitant]
  4. REMICADE [Suspect]
     Indication: CROHN'S DISEASE
     Route: 042
     Dates: start: 20080901
  5. CIPROFLOXACIN HCL [Concomitant]
  6. ADVIL LIQUI-GELS [Concomitant]
  7. FLAGYL [Concomitant]

REACTIONS (4)
  - CROHN'S DISEASE [None]
  - CONCUSSION [None]
  - STRESS [None]
  - ROAD TRAFFIC ACCIDENT [None]
